FAERS Safety Report 7262496-X (Version None)
Quarter: 2011Q1

REPORT INFORMATION
  Report Type: 
  Country: None (occurrence: None)
  Receive Date: 20110130
  Receipt Date: 20101129
  Transmission Date: 20110831
  Serious: Yes (Hospitalization)
  Sender: FDA-Public Use
  Company Number: US-ABBOTT-10P-163-0688184-00

PATIENT
  Sex: Male
  Weight: 90.8 kg

DRUGS (5)
  1. ALLOPURINOL [Concomitant]
     Indication: GOUT
  2. ATENOLOL [Concomitant]
     Indication: PRODUCT USED FOR UNKNOWN INDICATION
  3. HUMIRA [Suspect]
     Indication: RHEUMATOID ARTHRITIS
     Dates: start: 20040101, end: 20100101
  4. AMLODIPINE [Concomitant]
     Indication: HYPERTENSION
  5. HUMIRA [Suspect]
     Dates: start: 20101001

REACTIONS (3)
  - ARTHRITIS [None]
  - FATIGUE [None]
  - PAIN [None]
